FAERS Safety Report 6914311-9 (Version None)
Quarter: 2010Q3

REPORT INFORMATION
  Report Type: 
  Country: None (occurrence: None)
  Receive Date: 20100809
  Receipt Date: 20100802
  Transmission Date: 20110219
  Serious: Yes (Other)
  Sender: FDA-Public Use
  Company Number: B0669039A

PATIENT
  Age: 33 Year
  Sex: Male

DRUGS (2)
  1. ABACAVIR SULFATE AND LAMIVUDINE [Suspect]
     Indication: ACQUIRED IMMUNODEFICIENCY SYNDROME
     Route: 065
     Dates: start: 20100601
  2. VIRAMUNE [Concomitant]

REACTIONS (4)
  - GINGIVITIS [None]
  - LEUKOPENIA [None]
  - NEUTROPENIA [None]
  - OROPHARYNGEAL PAIN [None]
